FAERS Safety Report 6261055-5 (Version None)
Quarter: 2009Q3

REPORT INFORMATION
  Report Type: 
  Country: None (occurrence: None)
  Receive Date: 20090707
  Receipt Date: 20090625
  Transmission Date: 20100115
  Serious: Yes (Other)
  Sender: FDA-Public Use
  Company Number: CHPA2009US14181

PATIENT
  Age: 47 Year
  Sex: Male
  Weight: 115.6 kg

DRUGS (9)
  1. THERAFLU FORTIFENSE DIETERY SUPP (NCH) (UNKNOWN) POWDER [Suspect]
     Indication: SUPPLEMENTATION THERAPY
     Dosage: 1 DF, ONCE/SINGLE, ORAL
     Route: 048
     Dates: start: 20090624, end: 20090624
  2. TRAMADOL HCL [Concomitant]
  3. LISINOPRL/HCTZ (HYDROCHLOROTHIAZIDE, LISINOPRIL) [Concomitant]
  4. NIASPAN [Concomitant]
  5. LABETALOL HCL [Concomitant]
  6. PROPOXYPHENE (DEXTROPROPOXYPHENE) [Concomitant]
  7. ASPIRIN [Concomitant]
  8. AMLODIPINE BESYLATE [Concomitant]
  9. CRESTOR [Concomitant]

REACTIONS (4)
  - ANAPHYLACTIC SHOCK [None]
  - HYPERAESTHESIA [None]
  - RESPIRATORY DISTRESS [None]
  - SKIN BURNING SENSATION [None]
